FAERS Safety Report 19583821 (Version 2)
Quarter: 2021Q3

REPORT INFORMATION
  Report Type: Report from Study
  Country: US (occurrence: US)
  Receive Date: 20210720
  Receipt Date: 20210918
  Transmission Date: 20211014
  Serious: Yes (Life-Threatening, Other)
  Sender: FDA-Public Use
  Company Number: NVSC2021US162526

PATIENT
  Age: 77 Year
  Sex: Male

DRUGS (1)
  1. COSENTYX [Suspect]
     Active Substance: SECUKINUMAB
     Indication: PSORIATIC ARTHROPATHY
     Dosage: 300 MG, QMO (EVERY 28 DAYS)
     Route: 058
     Dates: start: 202005

REACTIONS (11)
  - Pericardial effusion [Unknown]
  - Myocardial infarction [Unknown]
  - Salivary gland calculus [Unknown]
  - Sleep disorder [Unknown]
  - Pain [Unknown]
  - Arthralgia [Unknown]
  - Heart injury [Unknown]
  - Dysstasia [Unknown]
  - Therapeutic product effect delayed [Unknown]
  - Mobility decreased [Unknown]
  - Therapeutic product effect incomplete [Unknown]

NARRATIVE: CASE EVENT DATE: 202102
